FAERS Safety Report 19174680 (Version 2)
Quarter: 2021Q2

REPORT INFORMATION
  Report Type: Report from Study
  Country: CA (occurrence: CA)
  Receive Date: 20210423
  Receipt Date: 20210512
  Transmission Date: 20210717
  Serious: Yes (Hospitalization)
  Sender: FDA-Public Use
  Company Number: CA-IPSEN BIOPHARMACEUTICALS, INC.-2021-04381

PATIENT
  Age: 65 Year
  Sex: Male

DRUGS (1)
  1. SOMATULINE AUTOGEL [Suspect]
     Active Substance: LANREOTIDE ACETATE
     Indication: CARCINOID SYNDROME
     Dosage: 120 MILLIGRAM EVERY 4 WEEKS
     Route: 058
     Dates: start: 20210111

REACTIONS (5)
  - Abdominal discomfort [Recovered/Resolved]
  - COVID-19 [Recovering/Resolving]
  - Diarrhoea [Recovered/Resolved]
  - Diarrhoea [Recovered/Resolved]
  - Product dose omission issue [Unknown]

NARRATIVE: CASE EVENT DATE: 2021
